FAERS Safety Report 5915521-X (Version None)
Quarter: 2008Q4

REPORT INFORMATION
  Report Type: 
  Country: None (occurrence: None)
  Receive Date: 20081010
  Receipt Date: 20080925
  Transmission Date: 20090506
  Serious: No
  Sender: FDA-Public Use
  Company Number: A0698161A

PATIENT
  Age: 45 Year
  Sex: Female

DRUGS (10)
  1. TYKERB [Suspect]
     Indication: BREAST CANCER
     Dosage: 5TAB PER DAY
     Route: 048
     Dates: end: 20080916
  2. TAMOXIFEN CITRATE [Concomitant]
     Dosage: 20MG PER DAY
     Route: 048
  3. ASPIRIN [Concomitant]
  4. UNSPECIFIED MEDICATION [Concomitant]
  5. VITAMIN AND MINERAL PRENATAL SUPPLEMENT W/ FOLIC ACID CAP [Concomitant]
  6. BLACK COHOSH [Concomitant]
  7. OSCAL [Concomitant]
  8. VYTORIN [Concomitant]
  9. HERCEPTIN [Concomitant]
     Dosage: 6MGK EVERY 3 WEEKS
     Route: 042
  10. DEXAMETHASONE [Concomitant]
     Indication: BRAIN OPERATION

REACTIONS (5)
  - ABDOMINAL DISCOMFORT [None]
  - DIARRHOEA [None]
  - MOTION SICKNESS [None]
  - NAUSEA [None]
  - RETCHING [None]
